FAERS Safety Report 7014256-2 (Version None)
Quarter: 2010Q3

REPORT INFORMATION
  Report Type: 
  Country: None (occurrence: None)
  Receive Date: 20100927
  Receipt Date: 20100914
  Transmission Date: 20110219
  Serious: Yes (Hospitalization)
  Sender: FDA-Public Use
  Company Number: CA-US-EMD SERONO, INC.-230215K09CAN

PATIENT
  Sex: Female

DRUGS (11)
  1. REBIF [Suspect]
     Indication: RELAPSING-REMITTING MULTIPLE SCLEROSIS
     Dates: start: 20050927
  2. SYNTHROID [Concomitant]
  3. CYTOMEL [Concomitant]
  4. DIAZIDE [Concomitant]
  5. VESICARE [Concomitant]
  6. ATAVAN [ATIVAN] [Concomitant]
  7. PANCRELIPASE [Concomitant]
  8. DOMPERIDONE [Concomitant]
  9. BUSCOPAN [Concomitant]
  10. ADVIL LIQUI-GELS [Concomitant]
     Indication: PAIN
  11. TYLENOL [Concomitant]
     Indication: PAIN

REACTIONS (12)
  - ABDOMINAL DISTENSION [None]
  - CHOLECYSTECTOMY [None]
  - FATIGUE [None]
  - GASTROINTESTINAL INJURY [None]
  - INJECTION SITE ERYTHEMA [None]
  - MULTIPLE SCLEROSIS RELAPSE [None]
  - NAUSEA [None]
  - PANCREATITIS [None]
  - PARAESTHESIA [None]
  - SINUSITIS [None]
  - STRESS [None]
  - URINE ODOUR ABNORMAL [None]
